FAERS Safety Report 13904335 (Version 1)
Quarter: 2017Q3

REPORT INFORMATION
  Report Type: Spontaneous
  Country: US (occurrence: None)
  Receive Date: 20170824
  Receipt Date: 20170824
  Transmission Date: 20171127
  Serious: Yes (Death)
  Sender: FDA-Public Use
  Company Number: None

PATIENT
  Age: 60 Year
  Sex: Female

DRUGS (5)
  1. OMEPRAZOLE. [Concomitant]
     Active Substance: OMEPRAZOLE
  2. METOCLOPRAM [Concomitant]
     Active Substance: METOCLOPRAMIDE
  3. SANCUSO [Suspect]
     Active Substance: GRANISETRON
     Indication: NAUSEA
     Route: 061
     Dates: start: 201707, end: 20170809
  4. SANCUSO [Suspect]
     Active Substance: GRANISETRON
     Indication: VOMITING
     Route: 061
     Dates: start: 201707, end: 20170809
  5. SANCUSO [Suspect]
     Active Substance: GRANISETRON
     Indication: BREAST CANCER
     Route: 061
     Dates: start: 201707, end: 20170809

REACTIONS (1)
  - Death [None]

NARRATIVE: CASE EVENT DATE: 20170809
